FAERS Safety Report 5307122-1 (Version None)
Quarter: 2007Q2

REPORT INFORMATION
  Report Type: 
  Country: None (occurrence: None)
  Receive Date: 20070423
  Receipt Date: 20070423
  Transmission Date: 20071010
  Serious: Yes (Hospitalization)
  Sender: FDA-Public Use
  Company Number: None

PATIENT
  Age: 6 Year
  Sex: Female
  Weight: 15 kg

DRUGS (4)
  1. ALDURAZYME [Suspect]
     Indication: MUCOPOLYSACCHARIDOSIS IH
     Dosage: 8.7 MG IV Q FRIDAY OVER 4
     Route: 042
  2. ALBUMIN (HUMAN) [Suspect]
     Dosage: 0.1 GRAMS  Q. FRIDAY OVER 4
  3. MIXED IN NS [Concomitant]
  4. ALBUTEIN [Concomitant]

REACTIONS (3)
  - FACE OEDEMA [None]
  - RASH ERYTHEMATOUS [None]
  - RESPIRATORY DISTRESS [None]
